FAERS Safety Report 8226945 (Version 2)
Quarter: 2012Q4

REPORT INFORMATION
  Report Type: 
  Country: US (occurrence: US)
  Receive Date: 20111103
  Receipt Date: 20121107
  Transmission Date: 20130627
  Serious: No
  Sender: FDA-Public Use
  Company Number: US-AMGEN-USASP2011037622

PATIENT
  Age: 50 Year
  Sex: Male

DRUGS (9)
  1. ENBREL [Suspect]
     Indication: PSORIATIC ARTHROPATHY
     Dosage: 50 mg, qwk
     Route: 058
  2. PROTONIX [Concomitant]
     Dosage: 20 mg, UNK
  3. XANAX [Concomitant]
     Dosage: .25 mg, UNK
  4. AMBIEN [Concomitant]
     Dosage: 5 mg, UNK
  5. ULTRACET [Concomitant]
  6. SYNTHROID [Concomitant]
     Dosage: 100 mg, UNK
  7. DIOVAN HCT [Suspect]
     Dosage: 320 mg, UNK
  8. BYSTOLIC [Concomitant]
     Dosage: 10 mg, UNK
  9. METHOTREXATE [Concomitant]
     Dosage: 25 mg, UNK

REACTIONS (6)
  - Rubber sensitivity [Unknown]
  - Injection site warmth [Unknown]
  - Injection site swelling [Unknown]
  - Injection site erythema [Unknown]
  - Injection site reaction [Unknown]
  - Injection site urticaria [Unknown]
